FAERS Safety Report 7360164-7 (Version None)
Quarter: 2011Q1

REPORT INFORMATION
  Report Type: 
  Country: None (occurrence: None)
  Receive Date: 20110318
  Receipt Date: 20110317
  Transmission Date: 20110831
  Serious: No
  Sender: FDA-Public Use
  Company Number: US-PFIZER INC-2011056127

PATIENT
  Sex: Female
  Weight: 58.957 kg

DRUGS (5)
  1. LYRICA [Suspect]
     Indication: FIBROMYALGIA
     Dosage: 75 MG, 2X/DAY
     Route: 048
     Dates: start: 20100801, end: 20100901
  2. EVISTA [Concomitant]
     Dosage: UNK
  3. LYRICA [Suspect]
     Dosage: 225 MG, 2X/DAY
     Dates: start: 20110201
  4. LYRICA [Suspect]
     Dosage: 150 MG, 2X/DAY
     Dates: start: 20100901, end: 20110201
  5. FOSAMAX [Concomitant]
     Dosage: UNK

REACTIONS (7)
  - MALAISE [None]
  - HEADACHE [None]
  - INSOMNIA [None]
  - FEELING ABNORMAL [None]
  - DRUG INEFFECTIVE [None]
  - NAUSEA [None]
  - PAIN [None]
